FAERS Safety Report 23489382 (Version 1)
Quarter: 2024Q1

REPORT INFORMATION
  Report Type: Spontaneous
  Country: US (occurrence: None)
  Receive Date: 20240206
  Receipt Date: 20240206
  Transmission Date: 20240410
  Serious: No
  Sender: FDA-Public Use
  Company Number: US-ROCHE-3450753

PATIENT
  Sex: Female
  Weight: 63.56 kg

DRUGS (8)
  1. XOLAIR [Suspect]
     Active Substance: OMALIZUMAB
     Indication: Urticaria
     Dosage: STRENGTH: 150 MG/ML
     Route: 058
     Dates: start: 2023
  2. XOLAIR [Suspect]
     Active Substance: OMALIZUMAB
  3. XOLAIR [Suspect]
     Active Substance: OMALIZUMAB
  4. XOLAIR [Suspect]
     Active Substance: OMALIZUMAB
     Indication: Idiopathic urticaria
  5. XOLAIR [Suspect]
     Active Substance: OMALIZUMAB
  6. XOLAIR [Suspect]
     Active Substance: OMALIZUMAB
  7. ATENOLOL [Concomitant]
     Active Substance: ATENOLOL
     Indication: Hypertension
     Route: 048
  8. ATORVASTATIN [Concomitant]
     Active Substance: ATORVASTATIN
     Indication: Blood cholesterol increased
     Route: 048

REACTIONS (7)
  - Syringe issue [Unknown]
  - Product dose omission issue [Unknown]
  - Device defective [Unknown]
  - Syringe issue [Unknown]
  - Product packaging issue [Unknown]
  - Product packaging issue [Unknown]
  - No adverse event [Unknown]

NARRATIVE: CASE EVENT DATE: 20231030
